FAERS Safety Report 5339460-0 (Version None)
Quarter: 2007Q2

REPORT INFORMATION
  Report Type: 
  Country: None (occurrence: None)
  Receive Date: 20070404
  Receipt Date: 20060413
  Transmission Date: 20071010
  Serious: Yes (Other)
  Sender: FDA-Public Use
  Company Number: 2006051060

PATIENT
  Age: 48 Year
  Sex: Male

DRUGS (14)
  1. GEODON [Suspect]
     Indication: BIPOLAR DISORDER
     Dosage: UNKNOWN (1 IN 1 D), UNKNOWN
     Dates: start: 20060308, end: 20060405
  2. NORVIR [Concomitant]
  3. FOSAMPRENAVIR (FOSAMPRENAVIR) [Concomitant]
  4. TRUVADA (EMTRICITABINE, TEMFOVIR DISOPROXIL FUMARATE) [Concomitant]
  5. LIPITOR [Concomitant]
  6. BENICAR [Concomitant]
  7. LAMICTAL [Concomitant]
  8. ATIVAN [Concomitant]
  9. FLEXERIL [Concomitant]
  10. EXTRA STRENGTH TYLENOL [Concomitant]
  11. NEURONTIN [Concomitant]
  12. TRAMADOL HCL [Concomitant]
  13. SEROQUEL [Concomitant]
  14. ADVIL [Concomitant]

REACTIONS (6)
  - AGITATION [None]
  - FEELING ABNORMAL [None]
  - HEPATITIS [None]
  - JAUNDICE [None]
  - NAUSEA [None]
  - SEDATION [None]
